FAERS Safety Report 19652022 (Version 4)
Quarter: 2021Q3

REPORT INFORMATION
  Report Type: Spontaneous
  Country: CA (occurrence: CA)
  Receive Date: 20210803
  Receipt Date: 20210907
  Transmission Date: 20211014
  Serious: Yes (Hospitalization)
  Sender: FDA-Public Use
  Company Number: CA-PFIZER INC-2021840690

PATIENT
  Age: 60 Year
  Sex: Female

DRUGS (19)
  1. O2 [OXYGEN] [Concomitant]
     Active Substance: OXYGEN
  2. BREO ELLIPTA [Concomitant]
     Active Substance: FLUTICASONE FUROATE\VILANTEROL TRIFENATATE
  3. PANTOPRAZOLE [Concomitant]
     Active Substance: PANTOPRAZOLE
  4. SYNTHROID [Concomitant]
     Active Substance: LEVOTHYROXINE SODIUM
  5. SYSTANE (HYPROMELLOSE 2910 (4000 MPA.S)) [Concomitant]
     Active Substance: HYPROMELLOSE 2910 (4000 MPA.S)
  6. DOMPERIDONE [Concomitant]
     Active Substance: DOMPERIDONE
  7. VITAMIN B12 [Concomitant]
     Active Substance: CYANOCOBALAMIN
  8. CALCIUM [Concomitant]
     Active Substance: CALCIUM
  9. IRON [Concomitant]
     Active Substance: IRON
  10. ACETAMINOPHEN. [Concomitant]
     Active Substance: ACETAMINOPHEN
  11. FUROSEMIDE. [Concomitant]
     Active Substance: FUROSEMIDE
  12. VITAMIN C [Concomitant]
     Active Substance: ASCORBIC ACID
  13. VOLIBRIS [Concomitant]
     Active Substance: AMBRISENTAN
  14. CARIPUL [Concomitant]
     Active Substance: EPOPROSTENOL
     Dosage: 3.2 UNK
  15. REVATIO [Suspect]
     Active Substance: SILDENAFIL CITRATE
     Indication: PULMONARY ARTERIAL HYPERTENSION
     Dosage: 20 MG
     Route: 048
     Dates: start: 20180117
  16. REVATIO [Suspect]
     Active Substance: SILDENAFIL CITRATE
     Dosage: 20 MG, 3X/DAY
     Route: 048
     Dates: start: 20180117
  17. SPIRONOLACTONE. [Concomitant]
     Active Substance: SPIRONOLACTONE
  18. OMNARIS [Concomitant]
     Active Substance: CICLESONIDE
  19. FERROUS GLUCONATE [Concomitant]
     Active Substance: FERROUS GLUCONATE
     Dosage: UNK

REACTIONS (3)
  - Gallbladder disorder [Recovered/Resolved]
  - Feeding disorder [Not Recovered/Not Resolved]
  - Parenteral nutrition [Unknown]

NARRATIVE: CASE EVENT DATE: 20210719
